FAERS Safety Report 13992165 (Version 2)
Quarter: 2017Q4

REPORT INFORMATION
  Report Type: Spontaneous
  Country: US (occurrence: US)
  Receive Date: 20170920
  Receipt Date: 20171123
  Transmission Date: 20180321
  Serious: No
  Sender: FDA-Public Use
  Company Number: US-JNJFOC-20170908483

PATIENT
  Sex: Female

DRUGS (14)
  1. TOPAMAX [Suspect]
     Active Substance: TOPIRAMATE
     Indication: PAIN
     Route: 048
  2. TOPAMAX [Suspect]
     Active Substance: TOPIRAMATE
     Indication: PAIN
     Route: 048
  3. OXYBUTYNIN. [Concomitant]
     Active Substance: OXYBUTYNIN CHLORIDE
     Indication: BLADDER DISORDER
     Route: 048
  4. DICLOFENAC SODIUM. [Concomitant]
     Active Substance: DICLOFENAC SODIUM
     Indication: ARTHRALGIA
     Route: 065
  5. OMEPRAZOLE. [Concomitant]
     Active Substance: OMEPRAZOLE
     Indication: GASTROOESOPHAGEAL REFLUX DISEASE
     Route: 065
  6. CYCLOBENZAPRINE. [Concomitant]
     Active Substance: CYCLOBENZAPRINE
     Indication: MUSCLE SPASMS
     Route: 065
  7. ALBUTEROL. [Concomitant]
     Active Substance: ALBUTEROL
     Indication: DYSPNOEA
     Route: 055
  8. TOPAMAX [Suspect]
     Active Substance: TOPIRAMATE
     Indication: PAIN
     Route: 048
     Dates: start: 2016
  9. CLARITIN [Concomitant]
     Active Substance: LORATADINE
     Indication: MULTIPLE ALLERGIES
     Route: 065
  10. ALBUTEROL. [Concomitant]
     Active Substance: ALBUTEROL
     Indication: DYSPNOEA
     Route: 055
  11. TOPAMAX [Suspect]
     Active Substance: TOPIRAMATE
     Indication: PAIN
     Route: 048
     Dates: end: 2016
  12. TOPAMAX [Suspect]
     Active Substance: TOPIRAMATE
     Indication: PAIN
     Route: 048
  13. VENLAFAXINE [Concomitant]
     Active Substance: VENLAFAXINE HYDROCHLORIDE
     Indication: DEPRESSION
     Dosage: ONCE IN THE MORNING
     Route: 065
  14. MELATONIN [Concomitant]
     Active Substance: MELATONIN
     Indication: SLEEP DISORDER
     Route: 065

REACTIONS (5)
  - Off label use [Unknown]
  - Memory impairment [Not Recovered/Not Resolved]
  - Blood cholesterol [Unknown]
  - Drug ineffective for unapproved indication [Unknown]
  - Hyperphagia [Not Recovered/Not Resolved]

NARRATIVE: CASE EVENT DATE: 2016
